FAERS Safety Report 8600616-2 (Version None)
Quarter: 2012Q3

REPORT INFORMATION
  Report Type: 
  Country: None (occurrence: None)
  Receive Date: 20120817
  Receipt Date: 20120811
  Transmission Date: 20120928
  Serious: No
  Sender: FDA-Public Use
  Company Number: US-AMGEN-USASP2012049945

PATIENT
  Age: 43 Year
  Sex: Female

DRUGS (2)
  1. ENBREL [Suspect]
     Dosage: UNK UNK, QWK
     Dates: start: 20060701, end: 20110201
  2. HUMIRA [Concomitant]
     Dosage: UNK

REACTIONS (1)
  - PREGNANCY [None]
